FAERS Safety Report 8389743-5 (Version None)
Quarter: 2012Q2

REPORT INFORMATION
  Report Type: 
  Country: None (occurrence: None)
  Receive Date: 20120524
  Receipt Date: 20120524
  Transmission Date: 20120825
  Serious: Yes (Other)
  Sender: FDA-Public Use
  Company Number: None

PATIENT
  Sex: Male
  Weight: 127.0072 kg

DRUGS (1)
  1. HEPARIN [Suspect]
     Indication: THROMBOSIS
     Dates: start: 20120204

REACTIONS (4)
  - HYPERHIDROSIS [None]
  - DYSPNOEA [None]
  - PAIN [None]
  - SKIN DISCOLOURATION [None]
